FAERS Safety Report 7878732-2 (Version None)
Quarter: 2011Q4

REPORT INFORMATION
  Report Type: 
  Country: None (occurrence: None)
  Receive Date: 20111028
  Receipt Date: 20111017
  Transmission Date: 20120403
  Serious: Yes (Hospitalization)
  Sender: FDA-Public Use
  Company Number: 1000024931

PATIENT
  Age: 77 Year
  Sex: Male
  Weight: 77 kg

DRUGS (6)
  1. LEXAPRO [Concomitant]
  2. SOMALGIM CARDIO (ACETYLSALICYLIC ACID) [Concomitant]
  3. CRESTOR [Concomitant]
  4. ALENIA (BUDESONIDE, FORMOTEROL FUMARATE) [Concomitant]
  5. ROFLUMILAST (ROFLUMILAST) (TABLETS) [Suspect]
     Indication: CHRONIC OBSTRUCTIVE PULMONARY DISEASE
     Dosage: 1 DF (1 DOSAGE FORMS, 1 IN 1 D) ORAL
     Route: 048
     Dates: start: 20110801, end: 20111001
  6. SPIRIVA [Concomitant]

REACTIONS (9)
  - WEIGHT DECREASED [None]
  - DIZZINESS [None]
  - MALAISE [None]
  - DYSPNOEA [None]
  - ASTHENIA [None]
  - DIARRHOEA [None]
  - FATIGUE [None]
  - TREMOR [None]
  - DECREASED APPETITE [None]
